FAERS Safety Report 23060417 (Version 1)
Quarter: 2023Q4

REPORT INFORMATION
  Report Type: Spontaneous
  Country: SE (occurrence: SE)
  Receive Date: 20231012
  Receipt Date: 20231012
  Transmission Date: 20240110
  Serious: Yes (Hospitalization, Other)
  Sender: FDA-Public Use
  Company Number: SE-Merck Healthcare KGaA-2023465636

PATIENT
  Sex: Male

DRUGS (2)
  1. BRIGATINIB [Suspect]
     Active Substance: BRIGATINIB
     Indication: Non-small cell lung cancer
     Dosage: UNK
     Route: 065
  2. TEPMETKO [Suspect]
     Active Substance: TEPOTINIB HYDROCHLORIDE
     Indication: Non-small cell lung cancer
     Dosage: 225 MILLIGRAM
     Route: 065
     Dates: start: 202304

REACTIONS (4)
  - Oedema peripheral [Not Recovered/Not Resolved]
  - Blood albumin decreased [Unknown]
  - Erysipelas [Recovering/Resolving]
  - Off label use [Unknown]
